FAERS Safety Report 23492914 (Version 1)
Quarter: 2024Q1

REPORT INFORMATION
  Report Type: Spontaneous
  Country: FR (occurrence: FR)
  Receive Date: 20240207
  Receipt Date: 20240207
  Transmission Date: 20240409
  Serious: Yes (Other)
  Sender: FDA-Public Use
  Company Number: None

PATIENT
  Age: 75 Year
  Sex: Male

DRUGS (17)
  1. QUETIAPINE [Suspect]
     Active Substance: QUETIAPINE
     Indication: Schizophrenia
     Dosage: AT 16H
     Dates: start: 20231215, end: 20231216
  2. LOXAPINE [Suspect]
     Active Substance: LOXAPINE
     Indication: Schizophrenia
     Dosage: 50 MG, FILM-COATED TABLET; 0.5-0.5-0.5
     Dates: end: 20231215
  3. TRIHEXYPHENIDYL HYDROCHLORIDE [Suspect]
     Active Substance: TRIHEXYPHENIDYL HYDROCHLORIDE
     Indication: Product used for unknown indication
     Dosage: 2 MG, PROLONGED RELEASE CAPSULE; 1-0-0
  4. TRIMEPRAZINE [Suspect]
     Active Substance: TRIMEPRAZINE
     Indication: Schizophrenia
     Dosage: 0-0-4; 5 MG, SCORED FILM-COATED TABLET
     Dates: end: 20231216
  5. FERROUS FUMARATE [Concomitant]
     Active Substance: FERROUS FUMARATE
     Dosage: 66 MG, FILM-COATED TABLET; 1-1-1
  6. TIAPRIDE HYDROCHLORIDE [Concomitant]
     Active Substance: TIAPRIDE HYDROCHLORIDE
     Indication: Schizophrenia
     Dosage: 100 MG, SCORED TABLET; THE EVENING
     Dates: end: 20231216
  7. DORZOLAMIDE [Concomitant]
     Active Substance: DORZOLAMIDE
     Dosage: 20 MG/ML + 5 MG/ML, EYE DROPS SOLUTION; 1-0-1
  8. MOVICOL [Concomitant]
     Active Substance: POLYETHYLENE GLYCOL 3350\POTASSIUM CHLORIDE\SODIUM BICARBONATE\SODIUM CHLORIDE
     Dosage: 1-0-0
  9. KARDEGIC [Concomitant]
     Active Substance: ASPIRIN DL-LYSINE
     Dosage: 75 MG, POWDER FOR ORAL SOLUTION IN SACHET-DOSE; 0-0-1
  10. LATANOPROST [Concomitant]
     Active Substance: LATANOPROST
     Dosage: 50 MICROGRAMS/ML, EYE DROPS SOLUTION IN SINGLE-DOSE CONTAINER; 0-0-1
  11. LEVETIRACETAM [Concomitant]
     Active Substance: LEVETIRACETAM
     Dosage: 1-0-1
  12. MIRTAZAPINE [Concomitant]
     Active Substance: MIRTAZAPINE
     Dosage: 0-0-1
  13. OXAZEPAM [Concomitant]
     Active Substance: OXAZEPAM
     Dosage: 10 MG, TABLET; 1-0-1
  14. EUPANTOL [Concomitant]
     Active Substance: PANTOPRAZOLE SODIUM
     Dosage: 40 MG, GASTRO-RESISTANT TABLET; 0-0-1
  15. CHOLECALCIFEROL [Concomitant]
     Active Substance: CHOLECALCIFEROL
     Dosage: 100,000 IU, ORAL SOLUTION IN AMPOULE; 1-0-0
  16. LOXAPINE [Suspect]
     Active Substance: LOXAPINE
     Indication: Schizophrenia
     Dosage: 50 MG, FILM-COATED TABLET; 0.5-0.5-1
     Dates: start: 20231215, end: 20231216
  17. QUETIAPINE [Suspect]
     Active Substance: QUETIAPINE
     Indication: Schizophrenia
     Dosage: AT 16H
     Dates: end: 20231215

REACTIONS (1)
  - Faecaloma [Recovered/Resolved]

NARRATIVE: CASE EVENT DATE: 20231217
